FAERS Safety Report 5725181-9 (Version None)
Quarter: 2008Q2

REPORT INFORMATION
  Report Type: 
  Country: None (occurrence: None)
  Receive Date: 20080501
  Receipt Date: 20080424
  Transmission Date: 20081010
  Serious: Yes (Death)
  Sender: FDA-Public Use
  Company Number: A0715792A

PATIENT
  Age: 77 Year
  Sex: Male

DRUGS (4)
  1. COREG CR [Suspect]
     Indication: EJECTION FRACTION DECREASED
     Dosage: 80MG PER DAY
     Route: 048
     Dates: start: 20080201
  2. ASPIRIN [Concomitant]
  3. GLAUCOMA MEDICATION (UNSPECIFIED) [Concomitant]
  4. ZOCOR [Concomitant]

REACTIONS (3)
  - CEREBROVASCULAR ACCIDENT [None]
  - EJECTION FRACTION DECREASED [None]
  - FEELING ABNORMAL [None]
